FAERS Safety Report 20310136 (Version 1)
Quarter: 2022Q1

REPORT INFORMATION
  Report Type: Report from Study
  Country: MX (occurrence: MX)
  Receive Date: 20220107
  Receipt Date: 20220107
  Transmission Date: 20220423
  Serious: Yes (Death, Hospitalization)
  Sender: FDA-Public Use
  Company Number: MX-UCBSA-2022000457

PATIENT
  Age: 72 Year
  Sex: Male
  Weight: 75 kg

DRUGS (4)
  1. ROTIGOTINE [Suspect]
     Active Substance: ROTIGOTINE
     Indication: Parkinson^s disease
     Dosage: 1 DOSAGE FORM, ONCE DAILY (QD)
     Route: 062
     Dates: start: 2018, end: 202011
  2. PK-MERZ [AMANTADINE] [Concomitant]
     Indication: Movement disorder
     Dosage: UNK
  3. PK-MERZ [AMANTADINE] [Concomitant]
     Indication: Musculoskeletal stiffness
  4. BIPERIDEN [Concomitant]
     Active Substance: BIPERIDEN
     Indication: Parkinson^s disease
     Dosage: UNK

REACTIONS (3)
  - Respiratory arrest [Fatal]
  - Cerebral haemorrhage [Not Recovered/Not Resolved]
  - Fall [Recovered/Resolved]

NARRATIVE: CASE EVENT DATE: 20200201
